FAERS Safety Report 13644696 (Version 1)
Quarter: 2017Q2

REPORT INFORMATION
  Report Type: Spontaneous
  Country: US (occurrence: US)
  Receive Date: 20170612
  Receipt Date: 20170612
  Transmission Date: 20170830
  Serious: No
  Sender: FDA-Public Use
  Company Number: US-ROCHE-1299366

PATIENT
  Sex: Female

DRUGS (2)
  1. XELODA [Suspect]
     Active Substance: CAPECITABINE
     Dosage: 2000MG IN MORNING/ 2000MG AT NIGHT
     Route: 048
  2. XELODA [Suspect]
     Active Substance: CAPECITABINE
     Indication: RECTAL CANCER
     Dosage: 1500MG IN MORNING/ 1500MG AT NIGHT
     Route: 048
     Dates: start: 20131009, end: 20131023

REACTIONS (2)
  - Malaise [Unknown]
  - Abdominal pain upper [Unknown]
